FAERS Safety Report 7216187-1 (Version None)
Quarter: 2011Q1

REPORT INFORMATION
  Report Type: 
  Country: None (occurrence: None)
  Receive Date: 20110107
  Receipt Date: 20110104
  Transmission Date: 20110831
  Serious: Yes (Hospitalization)
  Sender: FDA-Public Use
  Company Number: FR-PFIZER INC-2011001080

PATIENT
  Sex: Male

DRUGS (2)
  1. CIPROFLOXACIN HYDROCHLORIDE [Suspect]
     Dosage: UNK
     Dates: start: 20101212
  2. TAZOCILLINE [Suspect]
     Dosage: UNK
     Dates: start: 20101212

REACTIONS (1)
  - ANGIOEDEMA [None]
